FAERS Safety Report 8558126-7 (Version None)
Quarter: 2012Q3

REPORT INFORMATION
  Report Type: 
  Country: None (occurrence: None)
  Receive Date: 20120801
  Receipt Date: 20120727
  Transmission Date: 20120928
  Serious: Yes (Hospitalization, Disabling, Other)
  Sender: FDA-Public Use
  Company Number: US-PFIZER INC-2010035776

PATIENT
  Sex: Male

DRUGS (6)
  1. CHANTIX [Suspect]
     Indication: SMOKING CESSATION THERAPY
     Dosage: STARTING MONTH PACK
     Route: 048
     Dates: start: 20080225, end: 20080101
  2. SEROQUEL [Concomitant]
     Indication: POST-TRAUMATIC STRESS DISORDER
     Dosage: UNK
     Dates: start: 20070101, end: 20090101
  3. DOXYCYCLINE HYCLATE [Concomitant]
     Indication: ACNE
     Dosage: UNK
     Dates: start: 20050101
  4. CHANTIX [Suspect]
     Dosage: 1 MG TABLET, UNK
     Route: 048
     Dates: start: 20081101, end: 20081201
  5. SEROQUEL [Concomitant]
     Indication: DEPRESSION
  6. SEROQUEL [Concomitant]
     Indication: ANXIETY

REACTIONS (14)
  - INSOMNIA [None]
  - SUICIDAL IDEATION [None]
  - AGGRESSION [None]
  - POST-TRAUMATIC STRESS DISORDER [None]
  - SUICIDE ATTEMPT [None]
  - MENTAL DISORDER [None]
  - MAJOR DEPRESSION [None]
  - ANXIETY [None]
  - NERVOUS SYSTEM DISORDER [None]
  - HALLUCINATION [None]
  - NIGHTMARE [None]
  - PARANOIA [None]
  - ALCOHOL ABUSE [None]
  - FEAR [None]
